FAERS Safety Report 23981877 (Version 1)
Quarter: 2024Q2

REPORT INFORMATION
  Report Type: Spontaneous
  Country: IN (occurrence: None)
  Receive Date: 20240616
  Receipt Date: 20240616
  Transmission Date: 20240715
  Serious: Yes (Disabling)
  Sender: FDA-Public Use
  Company Number: None

PATIENT
  Age: 26 Year
  Sex: Male
  Weight: 65 kg

DRUGS (1)
  1. FINASTERIDE [Suspect]
     Active Substance: FINASTERIDE

REACTIONS (15)
  - Erectile dysfunction [None]
  - Testicular pain [None]
  - Abdominal discomfort [None]
  - Libido disorder [None]
  - Libido decreased [None]
  - Anxiety [None]
  - Depression [None]
  - Brain fog [None]
  - Headache [None]
  - Memory impairment [None]
  - Panic attack [None]
  - Feeling abnormal [None]
  - Anhedonia [None]
  - Asthenia [None]
  - Asthenia [None]

NARRATIVE: CASE EVENT DATE: 20240601
